FAERS Safety Report 13609920 (Version 2)
Quarter: 2017Q3

REPORT INFORMATION
  Report Type: Spontaneous
  Country: US (occurrence: US)
  Receive Date: 20170603
  Receipt Date: 20170720
  Transmission Date: 20171127
  Serious: No
  Sender: FDA-Public Use
  Company Number: PHEH2017US016350

PATIENT
  Sex: Female

DRUGS (1)
  1. PAZEO [Suspect]
     Active Substance: OLOPATADINE HYDROCHLORIDE
     Indication: PRODUCT USED FOR UNKNOWN INDICATION
     Route: 047

REACTIONS (2)
  - Eye pruritus [Unknown]
  - Product quality issue [Unknown]
